FAERS Safety Report 4937344-0 (Version None)
Quarter: 2006Q1

REPORT INFORMATION
  Report Type: 
  Country: None (occurrence: None)
  Receive Date: 20060309
  Receipt Date: 20051229
  Transmission Date: 20060701
  Serious: Yes (Life-Threatening, Hospitalization)
  Sender: FDA-Public Use
  Company Number: JP-ABBOTT-05P-087-0320883-00

PATIENT
  Sex: Female

DRUGS (10)
  1. KLARICID [Suspect]
     Indication: NASOPHARYNGITIS
     Route: 048
     Dates: start: 20051114, end: 20051118
  2. CANDESARTAN CILEXETIL [Interacting]
     Indication: HYPERTENSION
     Route: 048
     Dates: end: 20051118
  3. CANDESARTAN CILEXETIL [Interacting]
     Indication: CARDIAC FAILURE
  4. DISOPYRAMIDE [Suspect]
     Indication: ATRIAL FIBRILLATION
     Route: 048
     Dates: start: 20051027, end: 20051118
  5. WARFARIN SODIUM [Concomitant]
     Indication: ATRIAL FIBRILLATION
     Route: 048
     Dates: start: 20050823, end: 20051118
  6. VERAPAMIL HYDROCHLORIDE [Concomitant]
     Indication: ATRIAL FIBRILLATION
     Route: 048
     Dates: start: 20051006
  7. ACETYLSALICYLIC ACID SRT [Concomitant]
     Indication: ANGINA PECTORIS
     Route: 048
     Dates: start: 20050819, end: 20051118
  8. FAMOTIDINE [Concomitant]
     Indication: GASTRITIS
     Route: 048
     Dates: start: 20050819, end: 20051101
  9. ZYLORIC [Concomitant]
     Indication: HYPERURICAEMIA
     Route: 048
     Dates: start: 20050823, end: 20051118
  10. BERAPROST SODIUM [Concomitant]
     Indication: ARTERIOSCLEROSIS OBLITERANS
     Route: 048
     Dates: start: 20051004, end: 20051118

REACTIONS (5)
  - DRUG INTERACTION [None]
  - DRUG LEVEL INCREASED [None]
  - RENAL FAILURE CHRONIC [None]
  - SHOCK [None]
  - VENTRICULAR TACHYCARDIA [None]
